FAERS Safety Report 11339740 (Version 1)
Quarter: 2015Q3

REPORT INFORMATION
  Report Type: Spontaneous
  Country: BR (occurrence: None)
  Receive Date: 20150803
  Receipt Date: 20150803
  Transmission Date: 20151125
  Serious: Yes (Other)
  Sender: FDA-Public Use
  Company Number: 2015-001550

PATIENT
  Age: 53 Year
  Sex: Female
  Weight: 60 kg

DRUGS (2)
  1. ACTONEL [Suspect]
     Active Substance: RISEDRONATE SODIUM
     Indication: OSTEOPOROSIS
     Dosage: ONCE A MONTH
     Dates: start: 20150717
  2. ACTONEL [Suspect]
     Active Substance: RISEDRONATE SODIUM
     Indication: OSTEITIS
     Dosage: ONCE A MONTH
     Dates: start: 20150717

REACTIONS (4)
  - Back pain [None]
  - Arthralgia [None]
  - Chest pain [None]
  - Paralysis [None]

NARRATIVE: CASE EVENT DATE: 2015
